FAERS Safety Report 24602831 (Version 1)
Quarter: 2024Q4

REPORT INFORMATION
  Report Type: Other
  Country: CA (occurrence: CA)
  Receive Date: 20241111
  Receipt Date: 20241111
  Transmission Date: 20250115
  Serious: Yes (Life-Threatening, Disabling)
  Sender: APOTEX
  Company Number: CA-APOTEX-2024AP017342

PATIENT
  Sex: Female
  Weight: 60 kg

DRUGS (3)
  1. CELECOXIB [Suspect]
     Active Substance: CELECOXIB
     Indication: Ligament sprain
     Dosage: 200 MILLIGRAM, QD
     Route: 048
  2. CELECOXIB [Suspect]
     Active Substance: CELECOXIB
     Dosage: 200 MILLIGRAM, BID
     Route: 048
  3. TYLENOL ARTHRITIS PAIN [Concomitant]
     Active Substance: ACETAMINOPHEN
     Indication: Product used for unknown indication
     Dosage: UNK
     Route: 065

REACTIONS (11)
  - Trismus [Recovered/Resolved with Sequelae]
  - Feeding disorder [Recovered/Resolved with Sequelae]
  - Feeling abnormal [Recovered/Resolved with Sequelae]
  - Musculoskeletal stiffness [Recovered/Resolved with Sequelae]
  - Speech disorder [Recovered/Resolved with Sequelae]
  - Headache [Recovered/Resolved with Sequelae]
  - Paraesthesia [Recovered/Resolved with Sequelae]
  - Dysphagia [Recovered/Resolved with Sequelae]
  - Tinnitus [Recovered/Resolved with Sequelae]
  - Dizziness [Recovered/Resolved with Sequelae]
  - Vertigo [Recovered/Resolved with Sequelae]
